FAERS Safety Report 24987264 (Version 2)
Quarter: 2025Q1

REPORT INFORMATION
  Report Type: Spontaneous
  Country: RS (occurrence: RS)
  Receive Date: 20250219
  Receipt Date: 20250224
  Transmission Date: 20250409
  Serious: Yes (Life-Threatening, Hospitalization, Disabling)
  Sender: PFIZER
  Company Number: RS-TAKEDA-2025TUS015644

PATIENT
  Age: 37 Year
  Sex: Female
  Weight: 75 kg

DRUGS (6)
  1. CONTROLOC [Suspect]
     Active Substance: PANTOPRAZOLE SODIUM
     Indication: Gastritis
     Dosage: 20 MILLIGRAM, QD
     Route: 048
     Dates: start: 20221010, end: 20221015
  2. METRONIDAZOLE [Suspect]
     Active Substance: METRONIDAZOLE
     Indication: Prophylaxis
     Route: 048
     Dates: start: 20221116, end: 20221116
  3. ASPIRIN [Suspect]
     Active Substance: ASPIRIN
     Indication: COVID-19
     Route: 048
     Dates: start: 20230705, end: 20230705
  4. TETANUS TOXOID ADSORBED (VACCINE) [Suspect]
     Active Substance: CLOSTRIDIUM TETANI TOXOID ANTIGEN (FORMALDEHYDE INACTIVATED)
     Indication: Injury
     Route: 030
     Dates: start: 20220830, end: 20220830
  5. LEVOCETIRIZINE DIHYDROCHLORIDE [Suspect]
     Active Substance: LEVOCETIRIZINE DIHYDROCHLORIDE
     Indication: Hypersensitivity
     Route: 048
     Dates: start: 20230610, end: 20230620
  6. CEFIXIME [Suspect]
     Active Substance: CEFIXIME
     Indication: Infection
     Route: 048
     Dates: start: 20230705, end: 20230805

REACTIONS (6)
  - Asphyxia [Recovered/Resolved]
  - Toxicity to various agents [Not Recovered/Not Resolved]
  - Rash [Recovered/Resolved]
  - Chromaturia [Recovered/Resolved]
  - Tachycardia [Unknown]
  - Insomnia [Recovered/Resolved]

NARRATIVE: CASE EVENT DATE: 20220830
